FAERS Safety Report 14995628 (Version 1)
Quarter: 2018Q2

REPORT INFORMATION
  Report Type: Report from Study
  Country: GB (occurrence: GB)
  Receive Date: 20180611
  Receipt Date: 20180611
  Transmission Date: 20180711
  Serious: Yes (Hospitalization)
  Sender: FDA-Public Use
  Company Number: GB-JAZZ-2018-GB-008510

PATIENT
  Age: 58 Year
  Sex: Male

DRUGS (1)
  1. CPX-351 [Suspect]
     Active Substance: CYTARABINE\DAUNORUBICIN
     Dosage: UNK
     Route: 042
     Dates: start: 20180423, end: 20180427

REACTIONS (1)
  - Troponin T [Recovered/Resolved]

NARRATIVE: CASE EVENT DATE: 20180510
